FAERS Safety Report 11864383 (Version 1)
Quarter: 2015Q4

REPORT INFORMATION
  Report Type: Spontaneous
  Country: US (occurrence: US)
  Receive Date: 20151223
  Receipt Date: 20151223
  Transmission Date: 20160305
  Serious: No
  Sender: FDA-Public Use
  Company Number: US-ABBVIE-15P-163-1340920-00

PATIENT
  Sex: Male
  Weight: 118.04 kg

DRUGS (1)
  1. LUPRON DEPOT [Suspect]
     Active Substance: LEUPROLIDE ACETATE
     Indication: PROSTATE CANCER
     Route: 030
     Dates: start: 20140728, end: 201501

REACTIONS (2)
  - Drug level above therapeutic [Unknown]
  - Antiandrogen therapy [Unknown]

NARRATIVE: CASE EVENT DATE: 201501
